FAERS Safety Report 4770848-2 (Version None)
Quarter: 2005Q3

REPORT INFORMATION
  Report Type: 
  Country: None (occurrence: None)
  Receive Date: 20050915
  Receipt Date: 20050907
  Transmission Date: 20060218
  Serious: Yes (Death, Hospitalization)
  Sender: FDA-Public Use
  Company Number: SE-GLAXOSMITHKLINE-B0393769A

PATIENT
  Age: 59 Year
  Sex: Male

DRUGS (13)
  1. ZOVIRAX [Suspect]
     Indication: PROPHYLAXIS
     Dosage: 800MG PER DAY
     Route: 048
     Dates: start: 19940101
  2. ACTRAPID [Concomitant]
     Route: 065
  3. INSULATARD NPH HUMAN [Concomitant]
     Route: 065
  4. FOLACIN [Concomitant]
     Route: 065
  5. LANACRIST [Concomitant]
     Route: 065
  6. CALCIUM CARBONATE [Concomitant]
     Route: 065
  7. ORALOVITE [Concomitant]
     Route: 065
  8. IMPUGAN [Concomitant]
     Route: 065
  9. ZOCORD [Concomitant]
     Route: 065
  10. IMDUR [Concomitant]
     Route: 065
  11. ASPIRIN [Concomitant]
     Route: 065
  12. CYCLOSPORINE [Concomitant]
     Route: 065
  13. ATGAM [Concomitant]
     Route: 065

REACTIONS (5)
  - ARTERIAL THROMBOSIS [None]
  - CEREBRAL INFARCTION [None]
  - HALLUCINATION [None]
  - RENAL DISORDER [None]
  - RENAL HAEMORRHAGE [None]
